FAERS Safety Report 5390622-6 (Version None)
Quarter: 2007Q3

REPORT INFORMATION
  Report Type: 
  Country: None (occurrence: None)
  Receive Date: 20070718
  Receipt Date: 20070717
  Transmission Date: 20080115
  Serious: Yes (Hospitalization)
  Sender: FDA-Public Use
  Company Number: US-BRISTOL-MYERS SQUIBB COMPANY-13848312

PATIENT
  Age: 57 Year
  Sex: Male
  Weight: 81 kg

DRUGS (3)
  1. CETUXIMAB [Suspect]
     Indication: NEOPLASM MALIGNANT
     Dates: start: 20070626, end: 20070626
  2. CISPLATIN [Suspect]
     Indication: NEOPLASM MALIGNANT
     Dates: start: 20070612, end: 20070612
  3. RADIATION THERAPY [Suspect]
     Indication: NEOPLASM MALIGNANT
     Dates: start: 20070702, end: 20070702

REACTIONS (3)
  - DEHYDRATION [None]
  - ORAL PAIN [None]
  - STOMATITIS [None]
